FAERS Safety Report 20123741 (Version 1)
Quarter: 2021Q4

REPORT INFORMATION
  Report Type: Spontaneous
  Country: US (occurrence: US)
  Receive Date: 20211129
  Receipt Date: 20211129
  Transmission Date: 20220303
  Serious: No
  Sender: FDA-Public Use
  Company Number: US-ORGANON-O2111USA002187

PATIENT
  Age: 30 Year
  Sex: Female
  Weight: 68.934 kg

DRUGS (2)
  1. NUVARING [Suspect]
     Active Substance: ETHINYL ESTRADIOL\ETONOGESTREL
     Indication: Contraception
     Dosage: 1 DOSAGE FORM
     Route: 067
  2. NUVARING [Suspect]
     Active Substance: ETHINYL ESTRADIOL\ETONOGESTREL
     Dosage: 2 DOSAGE FORM
     Route: 067
     Dates: start: 202110

REACTIONS (4)
  - Abdominal distension [Unknown]
  - Mood altered [Unknown]
  - Device use issue [Unknown]
  - Overdose [Unknown]

NARRATIVE: CASE EVENT DATE: 20211001
